FAERS Safety Report 5194635-9 (Version None)
Quarter: 2006Q4

REPORT INFORMATION
  Report Type: 
  Country: None (occurrence: None)
  Receive Date: 20061221
  Receipt Date: 20061221
  Transmission Date: 20070319
  Serious: Yes (Hospitalization)
  Sender: FDA-Public Use
  Company Number: None

PATIENT
  Sex: Female
  Weight: 18 kg

DRUGS (8)
  1. CYCLOPHOSPHAMIDE [Suspect]
     Dosage: 685 MG
  2. CYTARABINE [Suspect]
     Dosage: 416 MG
  3. DEXAMETHASONE [Suspect]
     Dosage: 147 MG
  4. DOXORUBICIN HYDROCHLORIDE [Suspect]
     Dosage: 51.6 MG
  5. METHOTREXATE [Suspect]
     Dosage: 36 MG
  6. PEG-L-ASPARAGINASE (K-H) [Suspect]
     Dosage: 3430 MG
  7. THIOGUANINE [Suspect]
     Dosage: 560 MG
  8. VINCRISTINE SULFATE [Suspect]
     Dosage: 4 MG

REACTIONS (10)
  - BLOOD ELECTROLYTES ABNORMAL [None]
  - BLOOD POTASSIUM ABNORMAL [None]
  - COAGULOPATHY [None]
  - CYSTITIS HAEMORRHAGIC [None]
  - FLUID OVERLOAD [None]
  - NEUTROPENIA [None]
  - PLEURAL EFFUSION [None]
  - PULMONARY OEDEMA [None]
  - VENOOCCLUSIVE LIVER DISEASE [None]
  - VOMITING [None]
